FAERS Safety Report 5699370-6 (Version None)
Quarter: 2008Q2

REPORT INFORMATION
  Report Type: 
  Country: None (occurrence: None)
  Receive Date: 20080404
  Receipt Date: 20080319
  Transmission Date: 20081010
  Serious: Yes (Other)
  Sender: FDA-Public Use
  Company Number: GB-DEXPHARM-20080254

PATIENT
  Age: 54 Year
  Sex: Male

DRUGS (4)
  1. OMEPRAZOLE [Suspect]
     Indication: COUGH
     Dosage: ORAL
     Route: 048
     Dates: start: 20070301, end: 20080211
  2. BECLOMETHASONE DIPROPIONATE [Concomitant]
  3. FINASTERIDE [Concomitant]
  4. ALBUTEROL [Concomitant]

REACTIONS (2)
  - ALOPECIA [None]
  - MADAROSIS [None]
